FAERS Safety Report 9521425 (Version 2)
Quarter: 2013Q3

REPORT INFORMATION
  Report Type: Spontaneous
  Country: US (occurrence: None)
  Receive Date: 20130904
  Receipt Date: 20130909
  Transmission Date: 20140515
  Serious: Yes (Other)
  Sender: FDA-Public Use
  Company Number: 2013036145

PATIENT
  Age: 36 Year
  Sex: Female
  Weight: 109.32 kg

DRUGS (26)
  1. PRIVIGEN [Suspect]
     Indication: MULTIPLE SCLEROSIS
     Dosage: (20 G 1X/3 DAYS, 20 GM VIAL; OVER 2:20-4 HRS VIA PUMP INTRAVENOUS (NOT OTHERWISE SPECIFIED)??
     Dates: start: 20130517, end: 20130517
  2. ACETAMNOPHEN [Concomitant]
  3. DEXTROSE (GLUCOSE), LEVULOSE (FRUCTOSE), PHOSPHORIC ACID [Concomitant]
  4. DIPHENPHYDRAMINE (DIPHENHYDRAMINE) [Concomitant]
  5. HEPARIN (HEPARIN) [Concomitant]
  6. NORMAL SALINE (SODIUM CHLORIDE) [Concomitant]
  7. SODIUM CHLORIDE [Concomitant]
  8. EPIPEN (EPINEPHRINE) [Concomitant]
  9. CELLCEPT (MYCOPHENOLATE MOFETIL) TABLET [Concomitant]
  10. MIRALAX [Concomitant]
  11. CYMBALTA (DULOXETINE HYDROCHLORIDE) [Concomitant]
  12. METOCLOPRAMIDE (METOCLOPRAMIDE) [Concomitant]
  13. LORAZEPAM (LORAZEPAM) [Concomitant]
  14. METFORMIN HCL ER (METFORMIN HYDROCHLORIDE) [Concomitant]
  15. PROCHLORPERAZINE (PROCHLORPERAZINE) [Concomitant]
  16. VALIUM (DIAZEPAM) [Concomitant]
  17. ZOFRAN (ONDANSETRON) [Concomitant]
  18. METOPROLOL SUCCINATE ER (METOPROLOL SUCCINATE) [Concomitant]
  19. BENADRYL ALLERGY (CETIRIZINE HYDROCHLORIDE) [Concomitant]
  20. ACETAZOLAMIDE ER (ACETAZOLAMIDE) [Concomitant]
  21. FLOMAX (TAMSULOSIN HYDROCHLORIDE) [Concomitant]
  22. OXYCONTIN (OXYCODONE HYDROCHLORIDE) [Concomitant]
  23. ADDERALL XR (OBETROL/01345401/) [Concomitant]
  24. CVS OMEPRAZOLE DR (OMEPRAZOLE) [Concomitant]
  25. TYLENOL EXTRA STRENGTH (PARACETAMOL) [Concomitant]
  26. VITAMIN D3 (COLECALCIFEROL) [Concomitant]

REACTIONS (11)
  - Hypoaesthesia [None]
  - Paraesthesia [None]
  - Asthenia [None]
  - Fatigue [None]
  - Off label use [None]
  - Pyrexia [None]
  - Chills [None]
  - Headache [None]
  - Asthenia [None]
  - Paraesthesia [None]
  - Paraesthesia [None]
